FAERS Safety Report 8301009-8 (Version None)
Quarter: 2012Q2

REPORT INFORMATION
  Report Type: 
  Country: None (occurrence: None)
  Receive Date: 20120420
  Receipt Date: 20120413
  Transmission Date: 20120825
  Serious: Yes (Disabling, Other)
  Sender: FDA-Public Use
  Company Number: US-BAYER-2012-037428

PATIENT
  Sex: Female

DRUGS (1)
  1. CIPROFLOXACIN HCL [Suspect]
     Dosage: UNK
     Dates: start: 20091001

REACTIONS (9)
  - INJURY [None]
  - LIMB INJURY [None]
  - EYE DISORDER [None]
  - ABASIA [None]
  - TENDON DISORDER [None]
  - CHONDROPATHY [None]
  - NEUROPATHY PERIPHERAL [None]
  - MUSCULOSKELETAL DISORDER [None]
  - SKIN DISORDER [None]
